FAERS Safety Report 20655141 (Version 2)
Quarter: 2022Q2

REPORT INFORMATION
  Report Type: Spontaneous
  Country: US (occurrence: None)
  Receive Date: 20220330
  Receipt Date: 20220407
  Transmission Date: 20220720
  Serious: Yes (Hospitalization)
  Sender: FDA-Public Use
  Company Number: 2022A129303

PATIENT

DRUGS (10)
  1. EVUSHELD [Suspect]
     Active Substance: CILGAVIMAB\TIXAGEVIMAB
     Route: 030
  2. CYTARABINE [Suspect]
     Active Substance: CYTARABINE
     Indication: Acute myeloid leukaemia
     Route: 065
     Dates: start: 20211222
  3. CYTARABINE [Suspect]
     Active Substance: CYTARABINE
     Indication: FLT3 gene mutation
     Route: 065
     Dates: start: 20211222
  4. CILGAVIMAB [Suspect]
     Active Substance: CILGAVIMAB
     Route: 065
  5. GILTERITINIB [Suspect]
     Active Substance: GILTERITINIB
     Indication: Acute myeloid leukaemia
     Route: 065
     Dates: start: 20211227
  6. GILTERITINIB [Suspect]
     Active Substance: GILTERITINIB
     Indication: FLT3 gene mutation
     Route: 065
     Dates: start: 20211227
  7. ETOPOSIDE [Suspect]
     Active Substance: ETOPOSIDE
     Indication: Acute myeloid leukaemia
     Route: 065
     Dates: start: 20211222
  8. ETOPOSIDE [Suspect]
     Active Substance: ETOPOSIDE
     Indication: FLT3 gene mutation
     Route: 065
     Dates: start: 20211222
  9. INFLUENZA VIRUS VACCINE [Suspect]
     Active Substance: INFLUENZA VIRUS VACCINE
     Route: 065
  10. TIXAGEVIMAB [Suspect]
     Active Substance: TIXAGEVIMAB
     Route: 065

REACTIONS (2)
  - Guillain-Barre syndrome [Recovered/Resolved]
  - Muscular weakness [Recovered/Resolved]
